FAERS Safety Report 4424325-9 (Version None)
Quarter: 2004Q3

REPORT INFORMATION
  Report Type: 
  Country: None (occurrence: None)
  Receive Date: 20040809
  Receipt Date: 20040730
  Transmission Date: 20050211
  Serious: Yes (Hospitalization)
  Sender: FDA-Public Use
  Company Number: 2004224943US

PATIENT
  Age: 60 Year
  Sex: Female
  Weight: 92.6 kg

DRUGS (16)
  1. CAMPTOSAR [Suspect]
     Indication: GLIOBLASTOMA
     Dosage: 815 MG, CYCLIC IV
     Route: 042
     Dates: start: 20040603
  2. CLINICAL TRIAL PROCEDURE(CLINICAL TRIAL PROCEDURE) [Suspect]
     Indication: GLIOBLASTOMA
     Dosage: 6000 CGY, CYCLIC
     Dates: start: 20040603, end: 20040715
  3. DECADRON [Concomitant]
  4. PANTOPRAZOLE [Concomitant]
  5. MICRO-K [Concomitant]
  6. DILANTIN [Concomitant]
  7. ZOFRAN [Concomitant]
  8. VICODIN [Concomitant]
  9. LEVOTHROID [Concomitant]
  10. LIPITOR [Concomitant]
  11. VERAPAMIL [Concomitant]
  12. TRIAMTERENE AND HYDROCHLOROTHIAZIDE [Concomitant]
  13. CALTRATE [Concomitant]
  14. TUMS (MAGNESIUM CARBONATE, MAGNESIUM TRISILICATE) [Concomitant]
  15. CENTRUM SILVER (VITAMIN B NOS, VITAMIN NOS, RETINOL) [Concomitant]
  16. COMPAZINE [Concomitant]

REACTIONS (5)
  - BLOOD CALCIUM DECREASED [None]
  - BLOOD GLUCOSE INCREASED [None]
  - BLOOD POTASSIUM DECREASED [None]
  - CONVULSION [None]
  - DISEASE PROGRESSION [None]
